FAERS Safety Report 8171229-4 (Version None)
Quarter: 2012Q1

REPORT INFORMATION
  Report Type: 
  Country: None (occurrence: None)
  Receive Date: 20120104
  Receipt Date: 20111117
  Transmission Date: 20120608
  Serious: No
  Sender: FDA-Public Use
  Company Number: 2011HGS-002829

PATIENT
  Age: 46 Year
  Sex: Female
  Weight: 69.8539 kg

DRUGS (9)
  1. XANAX [Concomitant]
  2. POTASSIUM(POTASSIUM)(POTASSIUM) [Concomitant]
  3. CONTINUOUS OXYGEN(OXYGEN)(OXYGEN) [Concomitant]
  4. CORTEF(HYDR000RTISONE ACETATE)(HYDROCORTISONE ACETATE) [Concomitant]
  5. MS CONTIN(MORPHINE SULFATE)(MORPHINE SULFATE) [Concomitant]
  6. LASIX [Concomitant]
  7. PHENERGAN (PROMETHAZINE)(PROMETHAZINE) [Concomitant]
  8. BENLYSTA [Suspect]
     Indication: SYSTEMIC LUPUS ERYTHEMATOSUS
     Dosage: 1  IN 28 D, INTRAVENOUS DRIP
     Route: 043
     Dates: start: 20110715
  9. AMBIEN [Concomitant]

REACTIONS (1)
  - PYREXIA [None]
